APPROVED DRUG PRODUCT: OFLOXACIN
Active Ingredient: OFLOXACIN
Strength: 0.3%
Dosage Form/Route: SOLUTION/DROPS;OPHTHALMIC
Application: A076848 | Product #001
Applicant: SANDOZ
Approved: Nov 25, 2008 | RLD: No | RS: No | Type: DISCN